FAERS Safety Report 4616857-5 (Version None)
Quarter: 2005Q1

REPORT INFORMATION
  Report Type: 
  Country: None (occurrence: None)
  Receive Date: 20050321
  Receipt Date: 20030819
  Transmission Date: 20050727
  Serious: Yes (Hospitalization)
  Sender: FDA-Public Use
  Company Number: 5733

PATIENT
  Age: 44 Year
  Sex: Female

DRUGS (1)
  1. METOCLOPRAMIDE [Suspect]
     Indication: NAUSEA
     Dosage: 10 MG ONCE
     Route: 030

REACTIONS (5)
  - COMA [None]
  - DYSTONIA [None]
  - JOINT DISLOCATION [None]
  - OPISTHOTONUS [None]
  - PAIN IN EXTREMITY [None]
